FAERS Safety Report 5497859-6 (Version None)
Quarter: 2007Q4

REPORT INFORMATION
  Report Type: 
  Country: None (occurrence: None)
  Receive Date: 20071023
  Receipt Date: 20070927
  Transmission Date: 20080405
  Serious: Yes (Other)
  Sender: FDA-Public Use
  Company Number: 2007AP001057

PATIENT
  Age: 82 Year
  Sex: Female

DRUGS (4)
  1. PRAVASTATIN [Suspect]
     Indication: TRANSIENT ISCHAEMIC ATTACK
  2. SIMVASTATIN [Suspect]
     Dosage: PO
     Route: 048
  3. ACETYLSALICYLIC ACID SRT [Concomitant]
  4. LANSOPRAZOLE [Concomitant]

REACTIONS (6)
  - ANTI-SS-B ANTIBODY POSITIVE [None]
  - ANTINUCLEAR ANTIBODY POSITIVE [None]
  - CUTANEOUS LUPUS ERYTHEMATOSUS [None]
  - DIZZINESS [None]
  - LICHENOID KERATOSIS [None]
  - LYMPHOPENIA [None]
